FAERS Safety Report 6883237-1 (Version None)
Quarter: 2010Q3

REPORT INFORMATION
  Report Type: 
  Country: None (occurrence: None)
  Receive Date: 20100729
  Receipt Date: 20100721
  Transmission Date: 20110219
  Serious: Yes (Other)
  Sender: FDA-Public Use
  Company Number: CHPA2010US11802

PATIENT
  Age: 59 Year
  Sex: Male

DRUGS (13)
  1. PRIVATE LABEL (NCH) [Suspect]
     Indication: SMOKING CESSATION THERAPY
     Dosage: 21 MG, QD
     Route: 062
  2. PRIVATE LABEL (NCH) [Suspect]
     Dosage: 14 MG, QD
     Route: 062
  3. PRIVATE LABEL (NCH) [Suspect]
     Dosage: 7 MG, QD
     Route: 062
  4. PLAVIX [Concomitant]
     Route: 048
  5. FUROSEMIDE [Concomitant]
  6. CRESTOR [Concomitant]
  7. RANITIDINE [Concomitant]
     Route: 048
  8. AZOR (ALPRAZOLAM) [Concomitant]
  9. GLIPIZIDE [Concomitant]
  10. LEXAPRO [Concomitant]
  11. METOPROLOL TARTRATE [Concomitant]
     Route: 048
  12. NITROGLYCERIN [Concomitant]
     Route: 048
  13. ASPIRIN [Concomitant]
     Route: 048

REACTIONS (3)
  - CEREBROVASCULAR ACCIDENT [None]
  - INAPPROPRIATE SCHEDULE OF DRUG ADMINISTRATION [None]
  - ULCER HAEMORRHAGE [None]
